FAERS Safety Report 6053134-2 (Version None)
Quarter: 2009Q1

REPORT INFORMATION
  Report Type: 
  Country: None (occurrence: None)
  Receive Date: 20090123
  Receipt Date: 20090113
  Transmission Date: 20090719
  Serious: Yes (Other)
  Sender: FDA-Public Use
  Company Number: 08-002063

PATIENT
  Age: 50 Year
  Sex: Female

DRUGS (4)
  1. DORYX [Suspect]
     Indication: ROSACEA
     Dosage: 100 MG, QD, ORAL
     Route: 048
     Dates: start: 20051019, end: 20081101
  2. RANITIDINE [Suspect]
     Indication: DYSPEPSIA
     Dosage: 300 MG, QD, ORAL
     Route: 048
     Dates: start: 20080527, end: 20081101
  3. AMITRIPTYLINE /00002202/AMITRIPTYLINE HYDROCHLORIDE) [Concomitant]
  4. THYROXINE I 125 (THYROXINE I 125) [Concomitant]

REACTIONS (1)
  - ARTHRALGIA [None]
